FAERS Safety Report 6480989-X (Version None)
Quarter: 2009Q4

REPORT INFORMATION
  Report Type: 
  Country: None (occurrence: None)
  Receive Date: 20091208
  Receipt Date: 20091127
  Transmission Date: 20100525
  Serious: Yes (Life-Threatening)
  Sender: FDA-Public Use
  Company Number: DK-PFIZER INC-2009291425

PATIENT
  Age: 92 Year
  Sex: Female

DRUGS (6)
  1. GABAPENTIN [Suspect]
     Dosage: 300 MG, 1X/DAY
     Dates: start: 20091020, end: 20091020
  2. HJERTEMAGNYL [Concomitant]
     Dosage: 75 MG, 1X/DAY
     Route: 048
  3. NITRAZEPAM [Concomitant]
     Dosage: 5 MG, 1X/DAY
     Route: 048
  4. AMLODIPINE [Concomitant]
     Dosage: 5 MG, 1X/DAY
  5. FENTANYL [Concomitant]
     Dosage: 25 MICROGR/H EVERY 3RD DAY
     Route: 062
  6. MULTI-VITAMINS [Concomitant]
     Dosage: 1 UNK, 1X/DAY

REACTIONS (4)
  - GENERALISED OEDEMA [None]
  - HYPERSENSITIVITY [None]
  - MALAISE [None]
  - MUSCULOSKELETAL STIFFNESS [None]
